FAERS Safety Report 5171170-5 (Version None)
Quarter: 2006Q4

REPORT INFORMATION
  Report Type: 
  Country: None (occurrence: None)
  Receive Date: 20061207
  Receipt Date: 20061207
  Transmission Date: 20070319
  Serious: Yes (Life-Threatening)
  Sender: FDA-Public Use
  Company Number: None

PATIENT
  Age: 24 Year
  Sex: Male
  Weight: 97.5234 kg

DRUGS (1)
  1. PROZAC [Suspect]
     Indication: BIPOLAR DISORDER
     Dosage: 60 MG  1 TIME DAY MOUTH
     Route: 048
     Dates: start: 20000901

REACTIONS (4)
  - AGGRESSION [None]
  - IMPRISONMENT [None]
  - PHYSICAL ASSAULT [None]
  - SUICIDAL IDEATION [None]
